FAERS Safety Report 8843724 (Version 1)
Quarter: 2012Q4

REPORT INFORMATION
  Report Type: 
  Country: IT (occurrence: IT)
  Receive Date: 20121016
  Receipt Date: 20121016
  Transmission Date: 20130627
  Serious: Yes (Death)
  Sender: FDA-Public Use
  Company Number: IT-ABBOTT-12P-083-0995740-00

PATIENT
  Age: 45 Year
  Sex: Female

DRUGS (1)
  1. CYCLOSPORINE [Suspect]
     Indication: POLYMYOSITIS

REACTIONS (1)
  - Progressive multifocal leukoencephalopathy [Fatal]
